FAERS Safety Report 4829401-4 (Version None)
Quarter: 2005Q4

REPORT INFORMATION
  Report Type: 
  Country: None (occurrence: None)
  Receive Date: 20051028
  Receipt Date: 20050506
  Transmission Date: 20060501
  Serious: No
  Sender: FDA-Public Use
  Company Number: US131789

PATIENT
  Age: 44 Year
  Sex: Female
  Weight: 37.5 kg

DRUGS (6)
  1. SENSIPAR [Suspect]
     Indication: HYPERPARATHYROIDISM SECONDARY
     Dosage: 30 MG, 1 IN 1 DAYS, PO
     Route: 048
     Dates: start: 20050408
  2. METOPROLOL [Concomitant]
  3. NEPHRO-CAPS [Concomitant]
  4. NIFEDIPINE [Concomitant]
  5. SEVELAMER HCL [Concomitant]
  6. LISINOPRIL [Concomitant]

REACTIONS (2)
  - HOT FLUSH [None]
  - NIGHT SWEATS [None]
